FAERS Safety Report 10194100 (Version 1)
Quarter: 2014Q2

REPORT INFORMATION
  Report Type: Spontaneous
  Country: US (occurrence: US)
  Receive Date: 20140524
  Receipt Date: 20140524
  Transmission Date: 20141212
  Serious: No
  Sender: FDA-Public Use
  Company Number: US-SANOFI-AVENTIS-2013SA065625

PATIENT
  Age: 76 Year
  Sex: Female
  Weight: 88 kg

DRUGS (9)
  1. LANTUS SOLOSTAR [Suspect]
     Indication: TYPE 2 DIABETES MELLITUS
     Dosage: DOSE:15-35 UNITS DOSE:35 UNIT(S)
     Route: 051
     Dates: start: 201212, end: 201306
  2. LANTUS SOLOSTAR [Suspect]
     Indication: TYPE 2 DIABETES MELLITUS
     Dosage: DOSE:15-35 UNITS
     Route: 051
     Dates: start: 20130703
  3. SOLOSTAR [Suspect]
     Indication: TYPE 2 DIABETES MELLITUS
     Dosage: DOSE:15-35 UNITS
     Dates: start: 201212, end: 201306
  4. SOLOSTAR [Suspect]
     Indication: TYPE 2 DIABETES MELLITUS
     Dates: start: 20130703
  5. METFORMIN [Concomitant]
     Indication: DIABETES MELLITUS
     Dosage: DOSE:500
     Route: 065
  6. VALSARTAN [Concomitant]
     Indication: BLOOD PRESSURE
     Route: 065
  7. TERAZOSIN [Concomitant]
     Route: 065
  8. FUROSEMIDE [Concomitant]
     Route: 065
  9. LATANOPROST [Concomitant]
     Indication: GLAUCOMA
     Route: 065

REACTIONS (3)
  - Rash [Not Recovered/Not Resolved]
  - Swelling [Not Recovered/Not Resolved]
  - Pruritus [Not Recovered/Not Resolved]
